FAERS Safety Report 9813638 (Version 1)
Quarter: 2014Q1

REPORT INFORMATION
  Report Type: Spontaneous
  Country: US (occurrence: None)
  Receive Date: 20140109
  Receipt Date: 20140109
  Transmission Date: 20141002
  Serious: Yes (Other)
  Sender: FDA-Public Use
  Company Number: None

PATIENT
  Age: 72 Year
  Sex: Female
  Weight: 52.16 kg

DRUGS (1)
  1. XIAFXXAN [Suspect]
     Indication: GASTRITIS BACTERIAL
     Dosage: 3 DA  10DA
     Dates: start: 20131202

REACTIONS (6)
  - Abdominal pain [None]
  - Gastrooesophageal reflux disease [None]
  - Abdominal rigidity [None]
  - Ulcer [None]
  - Dyspepsia [None]
  - Lactic acidosis [None]
